FAERS Safety Report 16103438 (Version 1)
Quarter: 2019Q1

REPORT INFORMATION
  Report Type: Other
  Country: PT (occurrence: PT)
  Receive Date: 20190322
  Receipt Date: 20190322
  Transmission Date: 20190418
  Serious: Yes (Other)
  Sender: FDA-Public Use
  Company Number: PT-CELLTRION INC.-2019PT019476

PATIENT

DRUGS (1)
  1. INFLIXIMAB (UNKNOWN) [Suspect]
     Active Substance: INFLIXIMAB
     Indication: COLITIS ULCERATIVE
     Dosage: 450 MG, EVERY 4 WEEKS
     Route: 042
     Dates: start: 20180822

REACTIONS (4)
  - Pruritus [Recovered/Resolved]
  - Ear pruritus [Recovered/Resolved]
  - Product use issue [Recovered/Resolved]
  - Chest pain [Recovered/Resolved]

NARRATIVE: CASE EVENT DATE: 20190226
